FAERS Safety Report 16409293 (Version 1)
Quarter: 2019Q2

REPORT INFORMATION
  Report Type: Spontaneous
  Country: US (occurrence: US)
  Receive Date: 20190502
  Receipt Date: 20190502
  Transmission Date: 20190711
  Serious: No
  Sender: FDA-Public Use
  Company Number: None

PATIENT
  Age: 77 Year
  Sex: Female
  Weight: 61.23 kg

DRUGS (1)
  1. ALBUTEROL SULFATE HFA INHALATED AEROSOL [Suspect]
     Active Substance: ALBUTEROL SULFATE
     Indication: CHRONIC OBSTRUCTIVE PULMONARY DISEASE
     Dosage: ?          QUANTITY:90 UG MICROGRAM(S);?
     Route: 055
     Dates: start: 20190307, end: 20190308

REACTIONS (2)
  - Cough [None]
  - Product substitution issue [None]

NARRATIVE: CASE EVENT DATE: 20190306
